FAERS Safety Report 23526302 (Version 1)
Quarter: 2024Q1

REPORT INFORMATION
  Report Type: Spontaneous
  Country: DE (occurrence: DE)
  Receive Date: 20240215
  Receipt Date: 20240215
  Transmission Date: 20240410
  Serious: Yes (Other)
  Sender: FDA-Public Use
  Company Number: DE-LUNDBECK-DKLU3070697

PATIENT
  Age: 51 Year
  Sex: Male
  Weight: 118 kg

DRUGS (26)
  1. NAPROXEN SODIUM [Interacting]
     Active Substance: NAPROXEN\NAPROXEN SODIUM
     Indication: Anxiety
     Dosage: 500MG IF NECESSARY FOR KNEE PAIN
  2. NAPROXEN SODIUM [Interacting]
     Active Substance: NAPROXEN\NAPROXEN SODIUM
     Indication: Arthralgia
  3. CARIPRAZINE [Interacting]
     Active Substance: CARIPRAZINE
     Indication: Product used for unknown indication
     Dosage: UNK
  4. RISPERDAL [Interacting]
     Active Substance: RISPERIDONE
     Indication: Psychotic disorder
     Dosage: 4 MG
  5. RISPERDAL [Interacting]
     Active Substance: RISPERIDONE
     Indication: Psychotic disorder
  6. NEBIVOLOL [Interacting]
     Active Substance: NEBIVOLOL
     Indication: Hypertension
     Dosage: 2.5MG MORNING AND NIGHT
  7. TAVOR (LORAZEPAM) [Interacting]
     Active Substance: LORAZEPAM
     Indication: Anxiety
     Dosage: 1MG IF NECESSARY FOR SEDATION/ANXIETY
  8. TAVOR (LORAZEPAM) [Interacting]
     Active Substance: LORAZEPAM
     Indication: Sedation
  9. CANDESARTAN [Interacting]
     Active Substance: CANDESARTAN
     Indication: Hypertension
     Dosage: MORNING 8MG, AFTERNOON 4MG
  10. ZELDOX [Interacting]
     Active Substance: ZIPRASIDONE
     Indication: Product used for unknown indication
     Dosage: UNK
  11. ZYPREXA [Interacting]
     Active Substance: OLANZAPINE
     Indication: Product used for unknown indication
     Dosage: UNK
  12. RABEPRAZOLE [Interacting]
     Active Substance: RABEPRAZOLE
     Indication: Gastric pH increased
     Dosage: MORNING 20MG
  13. MELATONIN [Interacting]
     Active Substance: MELATONIN
     Indication: Product used for unknown indication
  14. ABILIFY [Interacting]
     Active Substance: ARIPIPRAZOLE
     Indication: Product used for unknown indication
  15. BROMAZEPAM [Interacting]
     Active Substance: BROMAZEPAM
     Indication: Sedation
     Dosage: 3MG IF NECESSARY FOR SEDATION/ANXIETY
  16. BROMAZEPAM [Interacting]
     Active Substance: BROMAZEPAM
     Indication: Anxiety
  17. RAMIPRIL [Interacting]
     Active Substance: RAMIPRIL
     Indication: Hypertension
  18. PROPRANOLOL [Interacting]
     Active Substance: PROPRANOLOL HYDROCHLORIDE
     Indication: Tremor
  19. SILDENAFIL [Interacting]
     Active Substance: SILDENAFIL
     Indication: Product used for unknown indication
  20. SEROQUEL [Interacting]
     Active Substance: QUETIAPINE FUMARATE
     Indication: Insomnia
     Dosage: 25-50MG IF NECESSARY TO CALM DOWN
  21. SEROQUEL [Interacting]
     Active Substance: QUETIAPINE FUMARATE
     Indication: Sedation
     Dosage: 100MG AT BEDTIME FOR SLEEP
  22. FLUPENTIXOL [Interacting]
     Active Substance: FLUPENTIXOL
     Indication: Psychotic disorder
     Dosage: MORNING: 5MG? EVENING: 6 MG? NIGHT: 2MG
  23. CHLORPROTHIXENE ACETATE [Interacting]
     Active Substance: CHLORPROTHIXENE ACETATE
     Indication: Insomnia
     Dosage: 100MG AT BEDTIME FOR SLEEP
  24. PROMETHAZINE HYDROCHLORIDE [Interacting]
     Active Substance: PROMETHAZINE HYDROCHLORIDE
     Indication: Product used for unknown indication
  25. PROMETHAZINE HYDROCHLORIDE [Interacting]
     Active Substance: PROMETHAZINE HYDROCHLORIDE
     Indication: Product used for unknown indication
     Dosage: 25 MG
  26. CLOZAPINE [Interacting]
     Active Substance: CLOZAPINE
     Indication: Product used for unknown indication

REACTIONS (11)
  - Suicidal ideation [Unknown]
  - Somnolence [Unknown]
  - Drug interaction [Unknown]
  - Parkinsonism [Unknown]
  - Flatulence [Unknown]
  - Blood pressure increased [Unknown]
  - Tremor [Unknown]
  - Dizziness [Unknown]
  - Condition aggravated [Unknown]
  - Brain fog [Unknown]
  - Impaired work ability [Unknown]
